FAERS Safety Report 4458296-6 (Version None)
Quarter: 2004Q3

REPORT INFORMATION
  Report Type: 
  Country: None (occurrence: None)
  Receive Date: 20040917
  Receipt Date: 20040428
  Transmission Date: 20050211
  Serious: Yes (Disabling, Other)
  Sender: FDA-Public Use
  Company Number: US-JNJFOC-20040100376

PATIENT
  Age: 41 Year
  Sex: Female
  Weight: 63.5036 kg

DRUGS (7)
  1. TOPAMAX [Suspect]
     Indication: CONVULSION
     Dosage: SEE IMAGE
     Route: 048
     Dates: start: 20030901
  2. TEGRETOL [Concomitant]
  3. XANAX [Concomitant]
  4. ZANTAC [Concomitant]
  5. SOMA [Concomitant]
  6. ARTHROTEC [Concomitant]
  7. COMBIVENT (COMBIVENT0 [Concomitant]

REACTIONS (5)
  - ANOREXIA [None]
  - ASTHENIA [None]
  - EPILEPTIC AURA [None]
  - NAUSEA [None]
  - WEIGHT DECREASED [None]
